FAERS Safety Report 17048893 (Version 3)
Quarter: 2020Q1

REPORT INFORMATION
  Report Type: Spontaneous
  Country: US (occurrence: US)
  Receive Date: 20191119
  Receipt Date: 20200309
  Transmission Date: 20200409
  Serious: Yes (Other)
  Sender: FDA-Public Use
  Company Number: US-SA-2019SA320125

PATIENT
  Sex: Female

DRUGS (13)
  1. ADVAIR HFA [Concomitant]
     Active Substance: FLUTICASONE PROPIONATE\SALMETEROL XINAFOATE
  2. BUDESONIDE. [Concomitant]
     Active Substance: BUDESONIDE
  3. BETAMETHASONE DIPROPIONATE. [Concomitant]
     Active Substance: BETAMETHASONE DIPROPIONATE
  4. WIXELA INHUB [Concomitant]
     Active Substance: FLUTICASONE PROPIONATE\SALMETEROL XINAFOATE
  5. TOBI [Concomitant]
     Active Substance: TOBRAMYCIN
  6. DUPIXENT [Suspect]
     Active Substance: DUPILUMAB
     Dosage: 300 MG, QOW
     Route: 058
  7. SODIUM CHLORIDE. [Concomitant]
     Active Substance: SODIUM CHLORIDE
  8. PREDNISONE. [Concomitant]
     Active Substance: PREDNISONE
  9. ALENDRONATE SODIUM. [Concomitant]
     Active Substance: ALENDRONATE SODIUM
  10. ESOMEPRAZOLE MAGNESIUM. [Concomitant]
     Active Substance: ESOMEPRAZOLE MAGNESIUM
  11. ITRACONAZOL [Concomitant]
     Active Substance: ITRACONAZOLE
  12. MONTELUKAST SODIUM. [Concomitant]
     Active Substance: MONTELUKAST SODIUM
  13. PROAIR HFA [Concomitant]
     Active Substance: ALBUTEROL SULFATE

REACTIONS (2)
  - Infection [Unknown]
  - Respiratory tract infection [Unknown]
